FAERS Safety Report 13863382 (Version 3)
Quarter: 2017Q4

REPORT INFORMATION
  Report Type: Spontaneous
  Country: US (occurrence: US)
  Receive Date: 20170814
  Receipt Date: 20171204
  Transmission Date: 20180320
  Serious: No
  Sender: FDA-Public Use
  Company Number: US-PFIZER INC-2017347380

PATIENT
  Age: 71 Year
  Sex: Female
  Weight: 52 kg

DRUGS (8)
  1. IBRANCE [Suspect]
     Active Substance: PALBOCICLIB
     Dosage: 75 MG, ALTERNATE DAY
     Route: 048
     Dates: start: 20170804, end: 2017
  2. LETROZOLE. [Suspect]
     Active Substance: LETROZOLE
     Dosage: 2.5 MG, CYCLIC (21 DAY CYCLE)
     Dates: start: 201707
  3. IBRANCE [Suspect]
     Active Substance: PALBOCICLIB
     Dosage: 75 MG, 1X/DAY
     Route: 048
     Dates: start: 20170710, end: 20170721
  4. IBRANCE [Suspect]
     Active Substance: PALBOCICLIB
     Dosage: 75 MG, CYCLIC (21 DAY CYCLE)
     Dates: start: 201707
  5. IBRANCE [Suspect]
     Active Substance: PALBOCICLIB
     Dosage: 75 MG, CYCLIC (ONCE A DAY BY MOUTH FOR 21 DAYS, STOP FOR 7 DAYS)
     Route: 048
     Dates: start: 201705
  6. LETROZOLE. [Suspect]
     Active Substance: LETROZOLE
     Dosage: 2.5 MG, 1X/DAY
     Route: 048
     Dates: start: 201705
  7. IBRANCE [Suspect]
     Active Substance: PALBOCICLIB
     Indication: BREAST CANCER STAGE IV
     Dosage: 125 MG, 1X/DAY
     Route: 048
     Dates: start: 20170511, end: 20170525
  8. LETROZOLE. [Suspect]
     Active Substance: LETROZOLE
     Indication: BREAST CANCER STAGE IV
     Dosage: 25 MG, 1X/DAY (WITH A MEAL)
     Route: 048
     Dates: start: 20170511, end: 2017

REACTIONS (21)
  - Superficial injury of eye [Recovered/Resolved]
  - Hypersensitivity [Recovered/Resolved]
  - Alopecia [Recovered/Resolved]
  - Myalgia [Unknown]
  - Head discomfort [Unknown]
  - Chapped lips [Not Recovered/Not Resolved]
  - Oral discomfort [Recovered/Resolved]
  - Eye oedema [Recovered/Resolved]
  - Fatigue [Recovered/Resolved]
  - White blood cell count decreased [Not Recovered/Not Resolved]
  - Muscle spasms [Unknown]
  - Hyperhidrosis [Recovered/Resolved]
  - Gait disturbance [Recovered/Resolved]
  - Intentional product misuse [Unknown]
  - Cough [Recovering/Resolving]
  - Neuropathy peripheral [Recovered/Resolved]
  - Full blood count decreased [Unknown]
  - Throat irritation [Unknown]
  - Asthenia [Recovered/Resolved]
  - Nasopharyngitis [Recovering/Resolving]
  - Rhinorrhoea [Recovering/Resolving]

NARRATIVE: CASE EVENT DATE: 2017
